FAERS Safety Report 5928271-0 (Version None)
Quarter: 2008Q4

REPORT INFORMATION
  Report Type: 
  Country: None (occurrence: None)
  Receive Date: 20081022
  Receipt Date: 20081022
  Transmission Date: 20090506
  Serious: Yes (Hospitalization)
  Sender: FDA-Public Use
  Company Number: None

PATIENT
  Sex: Male
  Weight: 2.69 kg

DRUGS (1)
  1. EFFEXOR XR [Suspect]
     Dosage: 37.5 MG 3X DAILY PO
     Route: 048
     Dates: start: 20081010, end: 20081016

REACTIONS (4)
  - CONVULSION [None]
  - CONVULSIVE THRESHOLD LOWERED [None]
  - DYSARTHRIA [None]
  - DYSPHASIA [None]
